FAERS Safety Report 9856216 (Version 1)
Quarter: 2014Q1

REPORT INFORMATION
  Report Type: Spontaneous
  Country: CL (occurrence: CL)
  Receive Date: 20140130
  Receipt Date: 20140130
  Transmission Date: 20141002
  Serious: Yes (Disabling, Other)
  Sender: FDA-Public Use
  Company Number: CL-PFIZER INC-2014026707

PATIENT
  Age: 78 Year
  Sex: Male

DRUGS (5)
  1. XALATAN [Suspect]
     Indication: GLAUCOMA
     Dosage: 1 DROP PER EYE AT NIGHT
     Route: 047
     Dates: start: 1994
  2. GLAUCOTENSIL [Concomitant]
  3. BETOPTIC [Concomitant]
  4. MORPHINE HYDROCHLORIDE [Concomitant]
  5. SCORPION VENOM [Concomitant]

REACTIONS (2)
  - Hepatic cancer metastatic [Not Recovered/Not Resolved]
  - Bedridden [Not Recovered/Not Resolved]
